FAERS Safety Report 4805789-5 (Version None)
Quarter: 2005Q4

REPORT INFORMATION
  Report Type: 
  Country: None (occurrence: None)
  Receive Date: 20051018
  Receipt Date: 20051005
  Transmission Date: 20060501
  Serious: Yes (Death)
  Sender: FDA-Public Use
  Company Number: US-2005-018493

PATIENT
  Age: 59 Year
  Sex: Male
  Weight: 62.6 kg

DRUGS (5)
  1. BETASERON [Suspect]
     Indication: RELAPSING-REMITTING MULTIPLE SCLEROSIS
     Dosage: 8 MIU EVERY 2D,  SUBCUTANEOUS
     Route: 058
     Dates: start: 19960101, end: 20050901
  2. LORAZEPAM [Concomitant]
  3. ASPIRIN [Concomitant]
  4. MEGACE [Concomitant]
  5. LEXAPRO [Concomitant]

REACTIONS (2)
  - ASPIRATION [None]
  - RESPIRATORY DISORDER [None]
